FAERS Safety Report 12398663 (Version 2)
Quarter: 2016Q2

REPORT INFORMATION
  Report Type: Spontaneous
  Country: JP (occurrence: JP)
  Receive Date: 20160524
  Receipt Date: 20160607
  Transmission Date: 20160815
  Serious: Yes (Other)
  Sender: FDA-Public Use
  Company Number: JP-TEVA-661700ISR

PATIENT
  Age: 16 Year
  Sex: Male

DRUGS (1)
  1. MODIODAL TABLETS 100MG [Suspect]
     Active Substance: MODAFINIL
     Indication: NARCOLEPSY
     Dosage: 150 MILLIGRAM DAILY;
     Route: 048
     Dates: start: 20160509, end: 20160509

REACTIONS (2)
  - Altered state of consciousness [Recovered/Resolved]
  - Dyspnoea [Recovered/Resolved]

NARRATIVE: CASE EVENT DATE: 20160509
